FAERS Safety Report 20381834 (Version 1)
Quarter: 2022Q1

REPORT INFORMATION
  Report Type: Spontaneous
  Country: US (occurrence: None)
  Receive Date: 20220126
  Receipt Date: 20220126
  Transmission Date: 20220423
  Serious: Yes (Hospitalization)
  Sender: FDA-Public Use
  Company Number: None

PATIENT
  Sex: Female

DRUGS (1)
  1. VERZENIO [Suspect]
     Active Substance: ABEMACICLIB
     Indication: Hepatocellular carcinoma
     Dosage: 50MG TWICE DAILY ORAL
     Route: 048
     Dates: start: 202111

REACTIONS (1)
  - Blood potassium decreased [None]
